FAERS Safety Report 7302339-9 (Version None)
Quarter: 2011Q1

REPORT INFORMATION
  Report Type: 
  Country: None (occurrence: None)
  Receive Date: 20110218
  Receipt Date: 20110211
  Transmission Date: 20110831
  Serious: Yes (Hospitalization, Other)
  Sender: FDA-Public Use
  Company Number: US-SANOFI-AVENTIS-2011SA009880

PATIENT
  Age: 73 Year
  Sex: Male

DRUGS (2)
  1. ACTOS [Suspect]
     Route: 065
  2. LANTUS [Suspect]
     Route: 058
     Dates: start: 20060101, end: 20100101

REACTIONS (5)
  - THROMBOSIS [None]
  - GASTRIC POLYPS [None]
  - GASTRIC CANCER [None]
  - HYPOGLYCAEMIA [None]
  - HAEMATOCHEZIA [None]
